FAERS Safety Report 25787225 (Version 2)
Quarter: 2025Q4

REPORT INFORMATION
  Report Type: Spontaneous
  Country: US (occurrence: US)
  Receive Date: 20250910
  Receipt Date: 20251015
  Transmission Date: 20260117
  Serious: No
  Sender: ROCHE
  Company Number: US-ROCHE-10000384341

PATIENT
  Sex: Male

DRUGS (10)
  1. ERIVEDGE [Suspect]
     Active Substance: VISMODEGIB
     Indication: Basal cell carcinoma
     Route: 048
  2. ALPRAZOLAM [Concomitant]
     Active Substance: ALPRAZOLAM
  3. Amiodarone H [Concomitant]
  4. Amlodipine B [Concomitant]
  5. ATENOLOL [Concomitant]
     Active Substance: ATENOLOL
  6. ELIQUIS [Concomitant]
     Active Substance: APIXABAN
  7. GABAPENTIN [Concomitant]
     Active Substance: GABAPENTIN
  8. LEVOTHYROXINE [Concomitant]
     Active Substance: LEVOTHYROXINE
  9. TAMSULOSIN [Concomitant]
     Active Substance: TAMSULOSIN
  10. Trazodone HC [Concomitant]

REACTIONS (1)
  - Contusion [Not Recovered/Not Resolved]
